FAERS Safety Report 19661248 (Version 2)
Quarter: 2021Q3

REPORT INFORMATION
  Report Type: Spontaneous
  Country: US (occurrence: US)
  Receive Date: 20210805
  Receipt Date: 20210916
  Transmission Date: 20211014
  Serious: Yes (Hospitalization, Other)
  Sender: FDA-Public Use
  Company Number: US-PFIZER INC-202100957400

PATIENT
  Age: 73 Year
  Sex: Female
  Weight: 84.81 kg

DRUGS (4)
  1. LEVOTHYROXINE. [Concomitant]
     Active Substance: LEVOTHYROXINE
     Dosage: UNK
  2. PRISTIQ EXTENDED?RELEASE [Suspect]
     Active Substance: DESVENLAFAXINE SUCCINATE
     Dosage: 37.5 MG
  3. HIDROCLOROTIAZIDE [Concomitant]
     Active Substance: HYDROCHLOROTHIAZIDE
     Dosage: UNK
  4. PRISTIQ EXTENDED?RELEASE [Suspect]
     Active Substance: DESVENLAFAXINE SUCCINATE
     Indication: DEPRESSION
     Dosage: 50 MG

REACTIONS (14)
  - Speech disorder [Recovered/Resolved]
  - Vomiting [Recovered/Resolved]
  - Blindness [Recovered/Resolved]
  - Meniere^s disease [Not Recovered/Not Resolved]
  - Migraine [Not Recovered/Not Resolved]
  - Headache [Unknown]
  - Fall [Not Recovered/Not Resolved]
  - Dizziness [Not Recovered/Not Resolved]
  - Nausea [Recovered/Resolved]
  - Eye movement disorder [Unknown]
  - Meniere^s disease [Not Recovered/Not Resolved]
  - Vertigo [Not Recovered/Not Resolved]
  - Intentional product use issue [Unknown]
  - Gastric disorder [Unknown]

NARRATIVE: CASE EVENT DATE: 202004
